FAERS Safety Report 6958631-0 (Version None)
Quarter: 2010Q3

REPORT INFORMATION
  Report Type: 
  Country: None (occurrence: None)
  Receive Date: 20100830
  Receipt Date: 20100830
  Transmission Date: 20110219
  Serious: Yes (Disabling)
  Sender: FDA-Public Use
  Company Number: None

PATIENT
  Age: 90 Year
  Sex: Female
  Weight: 43.9989 kg

DRUGS (1)
  1. VANCOMYCIN [Suspect]
     Indication: ABDOMINAL PAIN
     Dosage: 750MG 1X IV
     Route: 042
     Dates: start: 20100317, end: 20100317

REACTIONS (1)
  - URTICARIA [None]
